FAERS Safety Report 6453186-1 (Version None)
Quarter: 2009Q4

REPORT INFORMATION
  Report Type: 
  Country: None (occurrence: None)
  Receive Date: 20091110
  Receipt Date: 20091008
  Transmission Date: 20100525
  Serious: Yes (Other)
  Sender: FDA-Public Use
  Company Number: DSJ-2009-13971

PATIENT
  Age: 52 Year
  Sex: Female

DRUGS (3)
  1. BENICAR [Suspect]
     Indication: HYPERTENSION
     Dosage: 20 MG (1 IN 1 D), PER ORAL
     Route: 048
     Dates: start: 20060601, end: 20090201
  2. ATENOLOL [Concomitant]
  3. METFORMIN HCL [Concomitant]

REACTIONS (3)
  - DIARRHOEA [None]
  - DRUG INEFFECTIVE [None]
  - VOMITING [None]
